FAERS Safety Report 18926380 (Version 1)
Quarter: 2021Q1

REPORT INFORMATION
  Report Type: Report from Study
  Country: None (occurrence: BE)
  Receive Date: 20210222
  Receipt Date: 20210222
  Transmission Date: 20210420
  Serious: Yes (Hospitalization)
  Sender: FDA-Public Use
  Company Number: BE-ABBVIE-21K-013-3782174-00

PATIENT
  Age: 84 Year
  Sex: Male
  Weight: 81 kg

DRUGS (10)
  1. MIRAPEXIN [Concomitant]
     Active Substance: PRAMIPEXOLE
     Indication: PARKINSON^S DISEASE
     Dosage: FORM STRENGTH: 3.15MG + 2MG
     Route: 048
  2. AZILECT [Concomitant]
     Active Substance: RASAGILINE MESYLATE
     Indication: PARKINSON^S DISEASE
     Route: 048
  3. SERLAIN [Concomitant]
     Active Substance: SERTRALINE HYDROCHLORIDE
  4. DUODOPA [Suspect]
     Active Substance: CARBIDOPA\LEVODOPA
     Indication: PARKINSON^S DISEASE
     Dosage: UNKNOWN DOSAGES
     Route: 050
     Dates: start: 20161012, end: 20200908
  5. MIRAPEXIN [Concomitant]
     Active Substance: PRAMIPEXOLE
     Route: 048
  6. SERLAIN [Concomitant]
     Active Substance: SERTRALINE HYDROCHLORIDE
     Indication: PRODUCT USED FOR UNKNOWN INDICATION
  7. ASAFLOW [Concomitant]
     Active Substance: ASPIRIN
     Indication: PRODUCT USED FOR UNKNOWN INDICATION
  8. DUODOPA [Suspect]
     Active Substance: CARBIDOPA\LEVODOPA
     Dosage: MD=5.0ML, CD=5.0ML/HR DURING 16HRS, ED=1.5ML
     Route: 050
     Dates: start: 20200908
  9. AZILECT [Concomitant]
     Active Substance: RASAGILINE MESYLATE
     Route: 048
  10. BETASERC [Concomitant]
     Active Substance: BETAHISTINE
     Indication: PRODUCT USED FOR UNKNOWN INDICATION

REACTIONS (2)
  - Fatigue [Unknown]
  - Prostatic operation [Unknown]

NARRATIVE: CASE EVENT DATE: 20210211
